FAERS Safety Report 4968369-7 (Version None)
Quarter: 2006Q2

REPORT INFORMATION
  Report Type: 
  Country: None (occurrence: None)
  Receive Date: 20060410
  Receipt Date: 20060328
  Transmission Date: 20061013
  Serious: Yes (Hospitalization, Other)
  Sender: FDA-Public Use
  Company Number: JP-NOVOPROD-252103

PATIENT
  Age: 75 Year
  Sex: Female
  Weight: 47 kg

DRUGS (6)
  1. INNOLET N CHU [Suspect]
     Indication: INSULIN-REQUIRING TYPE II DIABETES MELLITUS
     Dosage: UNK, UNK
     Route: 058
     Dates: start: 20031001, end: 20060322
  2. BLOPRESS [Concomitant]
     Route: 048
     Dates: start: 20031001, end: 20060322
  3. ADALAT [Concomitant]
     Route: 048
     Dates: start: 20031001, end: 20060322
  4. BUFFERIN [Concomitant]
     Route: 048
     Dates: start: 20031001, end: 20060322
  5. RAMIAN [Concomitant]
     Route: 048
     Dates: start: 20031001, end: 20060322
  6. HALCION [Concomitant]
     Route: 048
     Dates: start: 20031001, end: 20060322

REACTIONS (3)
  - HYPOGLYCAEMIC COMA [None]
  - INTENTIONAL OVERDOSE [None]
  - SUICIDE ATTEMPT [None]
